FAERS Safety Report 12877211 (Version 1)
Quarter: 2016Q4

REPORT INFORMATION
  Report Type: Spontaneous
  Country: US (occurrence: US)
  Receive Date: 20161021
  Receipt Date: 20161021
  Transmission Date: 20170207
  Serious: No
  Sender: FDA-Public Use
  Company Number: None

PATIENT
  Age: 59 Year
  Sex: Male

DRUGS (1)
  1. HUMIRA [Suspect]
     Active Substance: ADALIMUMAB
     Indication: CROHN^S DISEASE
     Dosage: 40 MG/0.8ML Q2WKS SC
     Route: 058
     Dates: start: 20160601, end: 20160829

REACTIONS (1)
  - Psoriasis [None]

NARRATIVE: CASE EVENT DATE: 20160829
